FAERS Safety Report 12676311 (Version 1)
Quarter: 2016Q3

REPORT INFORMATION
  Report Type: Spontaneous
  Country: US (occurrence: None)
  Receive Date: 20160822
  Receipt Date: 20160822
  Transmission Date: 20161109
  Serious: No
  Sender: FDA-Public Use
  Company Number: None

PATIENT
  Age: 59 Year
  Sex: Female

DRUGS (3)
  1. ENBREL [Suspect]
     Active Substance: ETANERCEPT
     Indication: RHEUMATOID ARTHRITIS
     Dosage: 50MG/ML ONCE A WEEK SUBCUTANEOUS INJECTION
     Route: 058
     Dates: start: 20160212
  2. METOPROLOL. [Concomitant]
     Active Substance: METOPROLOL
  3. METHOTRAXATE 50MG/2ML APP PHARM [Suspect]
     Active Substance: METHOTREXATE SODIUM
     Indication: RHEUMATOID ARTHRITIS
     Route: 058
     Dates: start: 20160212

REACTIONS (2)
  - Myocardial infarction [None]
  - Drug dose omission [None]

NARRATIVE: CASE EVENT DATE: 20160806
